FAERS Safety Report 12719494 (Version 3)
Quarter: 2017Q3

REPORT INFORMATION
  Report Type: Spontaneous
  Country: JP (occurrence: JP)
  Receive Date: 20160907
  Receipt Date: 20170717
  Transmission Date: 20171127
  Serious: Yes (Death, Hospitalization, Other)
  Sender: FDA-Public Use
  Company Number: JP-ROCHE-1826090

PATIENT
  Age: 72 Year
  Sex: Male
  Weight: 51 kg

DRUGS (32)
  1. PREDNISOLONE. [Suspect]
     Active Substance: PREDNISOLONE
     Route: 048
     Dates: start: 20130417, end: 20130424
  2. PREDNISOLONE. [Suspect]
     Active Substance: PREDNISOLONE
     Route: 048
     Dates: start: 20130425, end: 20130508
  3. PREDNISOLONE. [Suspect]
     Active Substance: PREDNISOLONE
     Route: 048
     Dates: start: 20130509, end: 20130515
  4. PREDNISOLONE. [Suspect]
     Active Substance: PREDNISOLONE
     Route: 048
     Dates: start: 20121114, end: 20130104
  5. PREDNISOLONE. [Suspect]
     Active Substance: PREDNISOLONE
     Route: 048
     Dates: start: 20130410, end: 20130416
  6. PREDNISOLONE. [Suspect]
     Active Substance: PREDNISOLONE
     Route: 048
     Dates: start: 20121016, end: 20121030
  7. PREDNISOLONE. [Suspect]
     Active Substance: PREDNISOLONE
     Route: 048
     Dates: start: 20130130
  8. FAMOTIDINE D [Concomitant]
     Active Substance: FAMOTIDINE
     Indication: PROPHYLAXIS AGAINST GASTROINTESTINAL ULCER
     Route: 048
     Dates: start: 20120918
  9. MIZORIBINE [Concomitant]
     Active Substance: MIZORIBINE
     Route: 065
     Dates: start: 20130727, end: 20150717
  10. DENOSINE (JAPAN) [Suspect]
     Active Substance: GANCICLOVIR
     Indication: PRODUCT USED FOR UNKNOWN INDICATION
     Route: 041
     Dates: start: 20130326, end: 20130408
  11. LECTISOL [Suspect]
     Active Substance: DAPSONE
     Indication: PEMPHIGOID
     Route: 048
     Dates: start: 20121219, end: 20130201
  12. PREDNISOLONE. [Suspect]
     Active Substance: PREDNISOLONE
     Route: 048
     Dates: start: 20130523, end: 20130528
  13. MINOMYCIN [Suspect]
     Active Substance: MINOCYCLINE HYDROCHLORIDE
     Indication: PRODUCT USED FOR UNKNOWN INDICATION
     Route: 048
     Dates: start: 20120321, end: 20120618
  14. MINOMYCIN [Suspect]
     Active Substance: MINOCYCLINE HYDROCHLORIDE
     Route: 048
     Dates: start: 20120807, end: 20121128
  15. PREDNISOLONE. [Suspect]
     Active Substance: PREDNISOLONE
     Route: 048
     Dates: end: 20130318
  16. NICOTINAMIDE [Concomitant]
     Active Substance: NIACINAMIDE
     Route: 048
     Dates: start: 20120817, end: 20130318
  17. MINOMYCIN [Suspect]
     Active Substance: MINOCYCLINE HYDROCHLORIDE
     Route: 048
     Dates: start: 20130201, end: 20130318
  18. PREDNISOLONE. [Suspect]
     Active Substance: PREDNISOLONE
     Indication: INFLAMMATION
     Route: 048
     Dates: start: 20120918, end: 20121216
  19. PREDNISOLONE. [Suspect]
     Active Substance: PREDNISOLONE
     Route: 048
     Dates: start: 20130529, end: 20130613
  20. PREDNISOLONE. [Suspect]
     Active Substance: PREDNISOLONE
     Route: 048
     Dates: start: 20130104, end: 20130130
  21. PL [Concomitant]
     Active Substance: ACETAMINOPHEN\CAFFEINE\PROMETHAZINE\SALICYLAMIDE
     Route: 048
     Dates: start: 20130130, end: 20130201
  22. DENOSINE (JAPAN) [Suspect]
     Active Substance: GANCICLOVIR
     Route: 041
     Dates: start: 20130612, end: 20130628
  23. DENOSINE (JAPAN) [Suspect]
     Active Substance: GANCICLOVIR
     Route: 041
     Dates: start: 20131003, end: 20131007
  24. PREDNISOLONE. [Suspect]
     Active Substance: PREDNISOLONE
     Route: 048
     Dates: start: 20130319, end: 20130409
  25. DENOSINE (JAPAN) [Suspect]
     Active Substance: GANCICLOVIR
     Route: 041
     Dates: start: 20130724, end: 20130812
  26. PREDNISOLONE. [Suspect]
     Active Substance: PREDNISOLONE
     Route: 048
     Dates: start: 20130614
  27. PREDNISOLONE. [Suspect]
     Active Substance: PREDNISOLONE
     Route: 048
  28. PREDNISOLONE. [Suspect]
     Active Substance: PREDNISOLONE
     Route: 048
     Dates: start: 20130516, end: 20130522
  29. PREDNISOLONE. [Suspect]
     Active Substance: PREDNISOLONE
     Route: 048
     Dates: start: 20121030, end: 20121114
  30. VENOGLOBULIN IH [Concomitant]
     Active Substance: HUMAN IMMUNOGLOBULIN G
     Route: 065
     Dates: start: 20130328, end: 20130330
  31. ACHROMYCIN V [Concomitant]
     Active Substance: TETRACYCLINE HYDROCHLORIDE
     Route: 048
     Dates: start: 20121211, end: 20130201
  32. CALONAL [Concomitant]
     Active Substance: ACETAMINOPHEN
     Dosage: 400-1200 MG/DAY, DIVIDED INTO THREE TIMES AFTER MEALS
     Route: 048
     Dates: start: 20130201

REACTIONS (7)
  - Cytomegalovirus infection [Recovering/Resolving]
  - Rash [Recovering/Resolving]
  - Pneumocystis jirovecii pneumonia [Recovering/Resolving]
  - Quality of life decreased [Recovering/Resolving]
  - Pyrexia [Recovering/Resolving]
  - Drug reaction with eosinophilia and systemic symptoms [Fatal]
  - Pancytopenia [Recovering/Resolving]

NARRATIVE: CASE EVENT DATE: 201303
